FAERS Safety Report 25363650 (Version 1)
Quarter: 2025Q2

REPORT INFORMATION
  Report Type: Spontaneous
  Country: US (occurrence: None)
  Receive Date: 20250527
  Receipt Date: 20250527
  Transmission Date: 20250716
  Serious: Yes (Hospitalization)
  Sender: FDA-CTU
  Company Number: None

PATIENT
  Age: 59 Year
  Sex: Male
  Weight: 113.0 kg

DRUGS (1)
  1. ENFORTUMAB VEDOTIN [Suspect]
     Active Substance: ENFORTUMAB VEDOTIN
     Indication: Rectal adenocarcinoma
     Route: 042
     Dates: start: 20250415, end: 20250523

REACTIONS (7)
  - Metastases to central nervous system [None]
  - Cerebral mass effect [None]
  - Malignant neoplasm progression [None]
  - Vestibular disorder [None]
  - Metastases to lung [None]
  - Metastases to liver [None]
  - Metastases to adrenals [None]

NARRATIVE: CASE EVENT DATE: 20250523
